FAERS Safety Report 14774776 (Version 1)
Quarter: 2018Q2

REPORT INFORMATION
  Report Type: Spontaneous
  Country: US (occurrence: US)
  Receive Date: 20180418
  Receipt Date: 20180418
  Transmission Date: 20180711
  Serious: Yes (Hospitalization)
  Sender: FDA-Public Use
  Company Number: US-ASTELLAS-2017US039872

PATIENT
  Age: 72 Year
  Sex: Female

DRUGS (1)
  1. LEXISCAN [Suspect]
     Active Substance: REGADENOSON
     Indication: ANGINA PECTORIS
     Dosage: UNK, UNKNOWN FREQ. (12 SECONDS)
     Route: 065
     Dates: start: 20170928, end: 20170928

REACTIONS (2)
  - Incorrect drug administration duration [Unknown]
  - Blood pressure decreased [Recovered/Resolved]

NARRATIVE: CASE EVENT DATE: 20170928
